FAERS Safety Report 9253383 (Version 3)
Quarter: 2013Q4

REPORT INFORMATION
  Report Type: Spontaneous
  Country: US (occurrence: US)
  Receive Date: 20130425
  Receipt Date: 20131007
  Transmission Date: 20140711
  Serious: Yes (Death, Hospitalization)
  Sender: FDA-Public Use
  Company Number: US-ASTRAZENECA-2013SE27479

PATIENT
  Age: 54 Year
  Sex: Female
  Weight: 73.9 kg

DRUGS (25)
  1. NEXIUM [Suspect]
     Indication: GASTROOESOPHAGEAL REFLUX DISEASE
     Route: 048
     Dates: start: 2005, end: 2010
  2. NEXIUM [Suspect]
     Indication: GASTROOESOPHAGEAL REFLUX DISEASE
     Route: 048
     Dates: start: 2005, end: 2010
  3. NEXIUM [Suspect]
     Indication: GASTROOESOPHAGEAL REFLUX DISEASE
     Route: 048
     Dates: start: 20060322, end: 2010
  4. NEXIUM [Suspect]
     Indication: GASTROOESOPHAGEAL REFLUX DISEASE
     Route: 048
     Dates: start: 20060322, end: 2010
  5. FUROSEMIDE [Concomitant]
     Route: 048
  6. PLAVIX [Concomitant]
     Route: 048
  7. DEPAKOTE [Concomitant]
     Route: 048
  8. GABAPENTIN [Concomitant]
     Route: 048
  9. SYNTHROID [Concomitant]
     Route: 048
  10. PROZAC [Concomitant]
  11. RANITIDINE/ZANTAC [Concomitant]
     Route: 048
     Dates: start: 20110517
  12. PREVACID [Concomitant]
  13. LANTUS [Concomitant]
  14. CRESTOR [Concomitant]
  15. TIZANIDINE [Concomitant]
  16. ALBUTEROL [Concomitant]
  17. HYDROCODONE [Concomitant]
  18. XANAX [Concomitant]
  19. LEXAPRO [Concomitant]
  20. ZOLPIDEM [Concomitant]
     Dates: start: 20110701
  21. DIAZEPAM [Concomitant]
     Dates: start: 20110919
  22. SEROQUEL [Concomitant]
     Dates: start: 20100804
  23. OXYCODONE [Concomitant]
     Dosage: 7.5- 325 MG
     Dates: start: 20100804
  24. CALCIUM [Concomitant]
  25. VALIUM [Concomitant]

REACTIONS (11)
  - Death [Fatal]
  - Ankle fracture [Unknown]
  - Foot fracture [Unknown]
  - Fibula fracture [Unknown]
  - Tibia fracture [Unknown]
  - Osteoporosis [Unknown]
  - Bone disorder [Unknown]
  - Joint injury [Unknown]
  - Arthritis [Unknown]
  - Depression [Unknown]
  - Fall [Unknown]
